FAERS Safety Report 6939386-2 (Version None)
Quarter: 2010Q3

REPORT INFORMATION
  Report Type: 
  Country: None (occurrence: None)
  Receive Date: 20100819
  Receipt Date: 20100803
  Transmission Date: 20110219
  Serious: Yes (Hospitalization, Other)
  Sender: FDA-Public Use
  Company Number: 2009-199325-NL

PATIENT
  Age: 31 Year
  Sex: Female
  Weight: 70.3075 kg

DRUGS (1)
  1. NUVARING [Suspect]
     Indication: CONTRACEPTION
     Dates: start: 20080620, end: 20081006

REACTIONS (29)
  - AMENORRHOEA [None]
  - ARTHRALGIA [None]
  - BLOODY DISCHARGE [None]
  - BREAST MASS [None]
  - CONDITION AGGRAVATED [None]
  - CONTUSION [None]
  - DEEP VEIN THROMBOSIS [None]
  - DERMAL CYST [None]
  - EAR PAIN [None]
  - EMBOLISM VENOUS [None]
  - FIBROCYSTIC BREAST DISEASE [None]
  - HAEMOPTYSIS [None]
  - HEADACHE [None]
  - HOT FLUSH [None]
  - INJECTION SITE PAIN [None]
  - INTERNATIONAL NORMALISED RATIO INCREASED [None]
  - LIGAMENT DISORDER [None]
  - MIGRAINE [None]
  - MUSCLE SPASMS [None]
  - MUSCLE STRAIN [None]
  - NIGHT SWEATS [None]
  - OROPHARYNGEAL PAIN [None]
  - OSTEOPENIA [None]
  - OTITIS MEDIA [None]
  - PAIN [None]
  - PHARYNGITIS [None]
  - PREMATURE MENOPAUSE [None]
  - TOBACCO ABUSE [None]
  - VAGINAL DISCHARGE [None]
